FAERS Safety Report 8926395 (Version 2)
Quarter: 2012Q4

REPORT INFORMATION
  Report Type: 
  Country: US (occurrence: US)
  Receive Date: 20121127
  Receipt Date: 20121210
  Transmission Date: 20130627
  Serious: No
  Sender: FDA-Public Use
  Company Number: US-PFIZER INC-2012296640

PATIENT
  Age: 45 Year
  Sex: Male
  Weight: 127 kg

DRUGS (13)
  1. CHANTIX [Suspect]
     Indication: SMOKING CESSATION THERAPY
     Dosage: 0.5 mg, daily
     Route: 048
     Dates: start: 2009, end: 2009
  2. METOPROLOL [Concomitant]
     Indication: BLOOD PRESSURE HIGH
     Dosage: 25 mg, daily
  3. LISINOPRIL [Concomitant]
     Indication: BLOOD PRESSURE HIGH
     Dosage: 20 mg, daily
  4. OXYCODONE [Concomitant]
     Indication: BACK DISORDER
     Dosage: 15 mg, every four hours
     Route: 048
  5. OXYCODONE [Concomitant]
     Indication: NECK DISCOMFORT
  6. OXYCODONE [Concomitant]
     Indication: JOINT DISORDER
  7. VITAMIN D [Concomitant]
     Dosage: 14 IU, daily
  8. OMEGA 3 [Concomitant]
     Dosage: 1200 IU, daily
  9. ASPIRIN ^BAYER^ [Concomitant]
     Dosage: daily
  10. SIMVASTATIN [Concomitant]
     Indication: HIGH CHOLESTEROL
     Dosage: UNK
     Dates: end: 2012
  11. CYCLOBENZAPRINE [Concomitant]
     Dosage: 10 mg, daily
  12. TESTAPRIL [Concomitant]
     Indication: TESTOSTERONE LOW
     Dosage: UNK
  13. ONE-A-DAY [Concomitant]
     Dosage: daily

REACTIONS (3)
  - Nausea [Recovered/Resolved]
  - Nightmare [Recovered/Resolved]
  - Abnormal dreams [Recovered/Resolved]
